FAERS Safety Report 14605815 (Version 1)
Quarter: 2018Q1

REPORT INFORMATION
  Report Type: Spontaneous
  Country: FR (occurrence: FR)
  Receive Date: 20180306
  Receipt Date: 20180306
  Transmission Date: 20180509
  Serious: Yes (Hospitalization, Other)
  Sender: FDA-Public Use
  Company Number: FR-MERCK KGAA-2043115

PATIENT
  Sex: Female

DRUGS (2)
  1. NOVOTHYROX [Suspect]
     Active Substance: LEVOTHYROXINE SODIUM
     Indication: POST PROCEDURAL HYPOTHYROIDISM
  2. LEVOTHYROX 175 NF [Suspect]
     Active Substance: LEVOTHYROXINE

REACTIONS (10)
  - Asthenia [None]
  - Paraesthesia [None]
  - Angina pectoris [None]
  - Sleep paralysis [None]
  - Hyperthyroidism [None]
  - Visual impairment [None]
  - Insomnia [None]
  - Blood thyroid stimulating hormone decreased [None]
  - Palpitations [None]
  - Fatigue [None]
